FAERS Safety Report 5911205-2 (Version None)
Quarter: 2008Q4

REPORT INFORMATION
  Report Type: 
  Country: None (occurrence: None)
  Receive Date: 20081007
  Receipt Date: 20080728
  Transmission Date: 20090506
  Serious: No
  Sender: FDA-Public Use
  Company Number: US-BRISTOL-MYERS SQUIBB COMPANY-14280135

PATIENT
  Age: 62 Year
  Sex: Female
  Weight: 59 kg

DRUGS (11)
  1. AVAPRO [Suspect]
     Indication: HYPERTENSION
  2. ASACOL [Suspect]
  3. PENTASA [Suspect]
  4. NEXIUM [Suspect]
  5. PREDNISONE [Suspect]
  6. DIAZEPAM [Concomitant]
  7. PREMARIN [Concomitant]
  8. MULTI-VITAMIN [Concomitant]
  9. CALCIUM CITRATE [Concomitant]
  10. VITAMIN B COMPLEX CAP [Concomitant]
  11. STEROIDS [Concomitant]

REACTIONS (6)
  - BARRETT'S OESOPHAGUS [None]
  - DIARRHOEA [None]
  - GASTROINTESTINAL INFECTION [None]
  - GASTROOESOPHAGEAL REFLUX DISEASE [None]
  - MUSCLE SPASMS [None]
  - WEIGHT DECREASED [None]
